FAERS Safety Report 10552964 (Version 1)
Quarter: 2014Q4

REPORT INFORMATION
  Report Type: Spontaneous
  Country: US (occurrence: US)
  Receive Date: 20141029
  Receipt Date: 20141029
  Transmission Date: 20150529
  Serious: No
  Sender: FDA-Public Use
  Company Number: US-PFIZER INC-2014298816

PATIENT
  Age: 78 Year
  Sex: Female
  Weight: 70.75 kg

DRUGS (1)
  1. LYRICA [Suspect]
     Active Substance: PREGABALIN
     Indication: NEUROPATHY PERIPHERAL
     Dosage: 150 MG, DAILY [3 CAPSULES PER DAY 50 MG BY MOUTH]
     Route: 048

REACTIONS (3)
  - Hypoaesthesia [Unknown]
  - Neuropathy peripheral [Unknown]
  - Pain [Unknown]
